FAERS Safety Report 6036780-1 (Version None)
Quarter: 2009Q1

REPORT INFORMATION
  Report Type: 
  Country: None (occurrence: None)
  Receive Date: 20090114
  Receipt Date: 20090107
  Transmission Date: 20090719
  Serious: Yes (Other)
  Sender: FDA-Public Use
  Company Number: US-BAYER-200910075BCC

PATIENT
  Age: 95 Year
  Sex: Female
  Weight: 53 kg

DRUGS (1)
  1. ALEVE (CAPLET) [Suspect]
     Indication: ARTHRALGIA
     Dosage: UNIT DOSE: 220 MG
     Dates: start: 20090105, end: 20090101

REACTIONS (3)
  - ASTHMA [None]
  - COUGH [None]
  - WHEEZING [None]
